FAERS Safety Report 10495901 (Version 1)
Quarter: 2014Q4

REPORT INFORMATION
  Report Type: Spontaneous
  Country: BR (occurrence: BR)
  Receive Date: 20141003
  Receipt Date: 20141003
  Transmission Date: 20150528
  Serious: Yes (Other)
  Sender: FDA-Public Use
  Company Number: BR-009507513-1410BRA001189

PATIENT
  Sex: Female
  Weight: 2.9 kg

DRUGS (2)
  1. KEFLEX [Concomitant]
     Active Substance: CEPHALEXIN
     Indication: THERAPEUTIC PROCEDURE
     Route: 064
  2. MERCILON [Suspect]
     Active Substance: DESOGESTREL\ETHINYL ESTRADIOL
     Indication: CONTRACEPTION
     Dosage: 1 DF, QD
     Route: 064
     Dates: start: 2002, end: 2009

REACTIONS (1)
  - Foetal growth restriction [Recovered/Resolved]

NARRATIVE: CASE EVENT DATE: 2011
